FAERS Safety Report 6500303-0 (Version None)
Quarter: 2009Q4

REPORT INFORMATION
  Report Type: 
  Country: None (occurrence: None)
  Receive Date: 20091216
  Receipt Date: 20091209
  Transmission Date: 20100525
  Serious: Yes (Other)
  Sender: FDA-Public Use
  Company Number: ES-ROCHE-673597

PATIENT
  Age: 8 Year
  Sex: Male

DRUGS (1)
  1. TAMIFLU [Suspect]
     Dosage: DRUG REPORTED: OSELTAMIVIR/TAMIFLU 12MG/ML ORAL SUSPENSION
     Route: 048
     Dates: start: 20091026, end: 20091027

REACTIONS (1)
  - HALLUCINATION, VISUAL [None]
